FAERS Safety Report 8810699 (Version 1)
Quarter: 2012Q4

REPORT INFORMATION
  Report Type: Spontaneous
  Country: US (occurrence: None)
  Receive Date: 20120924
  Receipt Date: 20120924
  Transmission Date: 20130627
  Serious: Yes (Other)
  Sender: FDA-Public Use
  Company Number: None

PATIENT
  Age: 26 Year
  Sex: Female
  Weight: 53.52 kg

DRUGS (1)
  1. LO LOESTRIN FE [Suspect]
     Indication: POLYCYSTIC OVARIAN SYNDROME
     Route: 048
     Dates: start: 20120628, end: 20120804

REACTIONS (2)
  - Alopecia [None]
  - Alopecia [None]
